FAERS Safety Report 17068857 (Version 3)
Quarter: 2019Q4

REPORT INFORMATION
  Report Type: Spontaneous
  Country: US (occurrence: US)
  Receive Date: 20191124
  Receipt Date: 20191229
  Transmission Date: 20200122
  Serious: No
  Sender: FDA-Public Use
  Company Number: US-BIOGEN-2019BI00802892

PATIENT
  Age: 38 Year
  Sex: Female

DRUGS (1)
  1. TYSABRI [Suspect]
     Active Substance: NATALIZUMAB
     Indication: MULTIPLE SCLEROSIS
     Dosage: INFUSE OVER ONE?HOUR
     Route: 065
     Dates: start: 20190917

REACTIONS (10)
  - Increased appetite [Unknown]
  - Mobility decreased [Not Recovered/Not Resolved]
  - Feeling abnormal [Not Recovered/Not Resolved]
  - Blood glucose decreased [Unknown]
  - Nausea [Unknown]
  - Malaise [Unknown]
  - Influenza like illness [Not Recovered/Not Resolved]
  - Dizziness [Not Recovered/Not Resolved]
  - Typical aura without headache [Not Recovered/Not Resolved]
  - Abdominal discomfort [Not Recovered/Not Resolved]

NARRATIVE: CASE EVENT DATE: 201909
